FAERS Safety Report 9764619 (Version 1)
Quarter: 2013Q4

REPORT INFORMATION
  Report Type: Spontaneous
  Country: US (occurrence: None)
  Receive Date: 20131213
  Receipt Date: 20131213
  Transmission Date: 20140711
  Serious: Yes (Other)
  Sender: FDA-Public Use
  Company Number: 2013SA031822

PATIENT
  Sex: Male

DRUGS (8)
  1. MENTHOL [Suspect]
     Indication: MUSCULOSKELETAL PAIN
     Route: 061
     Dates: start: 200710
  2. CARVEDILOL [Concomitant]
  3. TERAZOSIN [Concomitant]
  4. LISINOPRIL [Concomitant]
  5. RANITIDINE [Concomitant]
  6. COLESTYRAMINE [Concomitant]
  7. SIMVASTATIN [Concomitant]
  8. GLUCOPHAGE [Concomitant]

REACTIONS (3)
  - Burns third degree [None]
  - Burns second degree [None]
  - Application site burn [None]
